FAERS Safety Report 7705666-6 (Version None)
Quarter: 2011Q3

REPORT INFORMATION
  Report Type: 
  Country: None (occurrence: None)
  Receive Date: 20110824
  Receipt Date: 20110803
  Transmission Date: 20111222
  Serious: No
  Sender: FDA-Public Use
  Company Number: US-MYLANLABS-2011S1012076

PATIENT
  Age: 62 Year
  Sex: Female
  Weight: 61.24 kg

DRUGS (9)
  1. VITAMIN D [Concomitant]
  2. ASPIRIN [Concomitant]
  3. TERBINAFINE HYDROCHLORIDE [Suspect]
     Indication: ONYCHOMYCOSIS
     Route: 048
     Dates: start: 20110303, end: 20110419
  4. FOLIC ACID [Concomitant]
  5. LORAZEPAM [Concomitant]
  6. NEXIUM [Concomitant]
  7. LIPITOR [Concomitant]
  8. TERBINAFINE HYDROCHLORIDE [Suspect]
     Indication: FUNGAL INFECTION
     Route: 048
     Dates: start: 20110303, end: 20110419
  9. ASCORBIC ACID [Concomitant]

REACTIONS (3)
  - DYSGEUSIA [None]
  - BREATH ODOUR [None]
  - AGEUSIA [None]
